FAERS Safety Report 15899528 (Version 1)
Quarter: 2019Q1

REPORT INFORMATION
  Report Type: Spontaneous
  Country: US (occurrence: US)
  Receive Date: 20190109
  Receipt Date: 20190109
  Transmission Date: 20190417
  Serious: Yes (Hospitalization)
  Sender: FDA-Public Use
  Company Number: None

PATIENT
  Age: 57 Year
  Sex: Male

DRUGS (1)
  1. CEFTAROLINE [Suspect]
     Active Substance: CEFTAROLINE
     Indication: INFECTIOUS DISEASE CARRIER
     Route: 042
     Dates: start: 20181009, end: 20181128

REACTIONS (2)
  - Blood creatinine increased [None]
  - Eosinophils urine present [None]

NARRATIVE: CASE EVENT DATE: 20181126
